FAERS Safety Report 23530166 (Version 1)
Quarter: 2024Q1

REPORT INFORMATION
  Report Type: Spontaneous
  Country: US (occurrence: US)
  Receive Date: 20240216
  Receipt Date: 20240216
  Transmission Date: 20240409
  Serious: No
  Sender: FDA-Public Use
  Company Number: US-ABBVIE-5638756

PATIENT
  Sex: Female

DRUGS (1)
  1. LATISSE [Suspect]
     Active Substance: BIMATOPROST
     Indication: Product used for unknown indication
     Dosage: STRENGTH 0.03 PERCENT, 5 ML 140 APPS OVER CAP
     Route: 047
     Dates: start: 20231216

REACTIONS (2)
  - Product quality issue [Unknown]
  - Drug ineffective [Unknown]
